FAERS Safety Report 5147857-7 (Version None)
Quarter: 2006Q4

REPORT INFORMATION
  Report Type: 
  Country: None (occurrence: None)
  Receive Date: 20061110
  Receipt Date: 20061031
  Transmission Date: 20070319
  Serious: Yes (Other)
  Sender: FDA-Public Use
  Company Number: FR-AMGEN-UK198797

PATIENT
  Age: 45 Year
  Sex: Female
  Weight: 77 kg

DRUGS (8)
  1. NEULASTA [Suspect]
     Indication: CHEMOTHERAPY
     Route: 065
     Dates: start: 20061008
  2. FLUOROURACIL [Concomitant]
     Route: 065
     Dates: start: 20060703
  3. ETOPOSIDE [Concomitant]
     Route: 065
     Dates: start: 20060703
  4. CYCLOPHOSPHAMIDE [Concomitant]
     Route: 065
     Dates: start: 20060703
  5. ZOFRAN [Concomitant]
     Route: 065
  6. SOLU-MEDROL [Concomitant]
     Route: 065
  7. TRANXENE [Concomitant]
     Route: 065
  8. ZOLOFT [Concomitant]
     Route: 065

REACTIONS (6)
  - ANAPHYLACTIC SHOCK [None]
  - BACK PAIN [None]
  - HYPOTENSION [None]
  - MALAISE [None]
  - RESPIRATORY DISORDER [None]
  - TACHYCARDIA [None]
